FAERS Safety Report 6667680-1 (Version None)
Quarter: 2010Q2

REPORT INFORMATION
  Report Type: 
  Country: None (occurrence: None)
  Receive Date: 20100405
  Receipt Date: 20100330
  Transmission Date: 20101027
  Serious: Yes (Other)
  Sender: FDA-Public Use
  Company Number: FR-BRISTOL-MYERS SQUIBB COMPANY-14958409

PATIENT
  Age: 54 Year
  Sex: Female

DRUGS (5)
  1. KENACORT [Suspect]
     Indication: HYPERSENSITIVITY
     Route: 030
     Dates: start: 20051027
  2. XYZAL [Concomitant]
     Indication: URTICARIA
     Dosage: 1DF- 1 TABS
     Route: 048
  3. XYZAL [Concomitant]
     Indication: HYPERSENSITIVITY
     Dosage: 1DF- 1 TABS
     Route: 048
  4. ATARAX [Concomitant]
     Indication: URTICARIA CHRONIC
     Route: 048
  5. GINKOR FORT [Concomitant]
     Indication: VENOUS INSUFFICIENCY
     Dosage: 2DF- 2 CAPS

REACTIONS (3)
  - PAIN [None]
  - SKIN ATROPHY [None]
  - SKIN NECROSIS [None]
